FAERS Safety Report 15969076 (Version 1)
Quarter: 2019Q1

REPORT INFORMATION
  Report Type: Spontaneous
  Country: DE (occurrence: DE)
  Receive Date: 20190215
  Receipt Date: 20190215
  Transmission Date: 20190418
  Serious: Yes (Other)
  Sender: FDA-Public Use
  Company Number: PHHY2019DE033902

PATIENT
  Sex: Male
  Weight: 85 kg

DRUGS (8)
  1. ALFUZOSIN [Concomitant]
     Active Substance: ALFUZOSIN
     Indication: PRODUCT USED FOR UNKNOWN INDICATION
     Dosage: 2.5 MG
     Route: 065
  2. LISINOPRIL. [Concomitant]
     Active Substance: LISINOPRIL
     Indication: PRODUCT USED FOR UNKNOWN INDICATION
     Dosage: 10 MG
     Route: 065
  3. METHYLPREDNISOLON [Concomitant]
     Active Substance: METHYLPREDNISOLONE
     Indication: PRODUCT USED FOR UNKNOWN INDICATION
     Dosage: 1 G, UNK
     Route: 065
     Dates: start: 20180323, end: 20180325
  4. PREDNISOLONE HEMISUCCINATE [Concomitant]
     Active Substance: PREDNISOLONE HEMISUCCINATE
     Indication: PRODUCT USED FOR UNKNOWN INDICATION
     Dosage: 1000 MG, UNK
     Route: 065
     Dates: start: 20180926, end: 20180928
  5. PREDNISOLONE HEMISUCCINATE [Concomitant]
     Active Substance: PREDNISOLONE HEMISUCCINATE
     Dosage: 1000 MG, UNK
     Route: 065
     Dates: start: 20181009, end: 20181012
  6. PREDNISOLONE HEMISUCCINATE [Concomitant]
     Active Substance: PREDNISOLONE HEMISUCCINATE
     Dosage: 1000 MG, UNK
     Route: 065
     Dates: start: 20170516, end: 20170619
  7. INTERFERON BETA-1B [Suspect]
     Active Substance: INTERFERON BETA-1B
     Indication: MULTIPLE SCLEROSIS
     Dosage: UNK
     Route: 058
     Dates: start: 20170407, end: 20181012
  8. BISOPROLOL [Concomitant]
     Active Substance: BISOPROLOL
     Indication: PRODUCT USED FOR UNKNOWN INDICATION
     Dosage: 5 MG
     Route: 065

REACTIONS (2)
  - Drug ineffective [Recovered/Resolved]
  - Atrial flutter [Recovered/Resolved]

NARRATIVE: CASE EVENT DATE: 20181012
